FAERS Safety Report 8305807-6 (Version None)
Quarter: 2012Q2

REPORT INFORMATION
  Report Type: 
  Country: None (occurrence: None)
  Receive Date: 20120423
  Receipt Date: 20120420
  Transmission Date: 20120825
  Serious: Yes (Other)
  Sender: FDA-Public Use
  Company Number: US-PFIZER INC-2012098638

PATIENT
  Sex: Female
  Weight: 72.562 kg

DRUGS (2)
  1. ARTHROTEC [Suspect]
     Indication: ARTHRITIS
     Dosage: UNK
  2. GEODON [Suspect]
     Indication: SLEEP DISORDER
     Dosage: 180 MG, DAILY

REACTIONS (1)
  - DIABETES MELLITUS [None]
